FAERS Safety Report 13119930 (Version 2)
Quarter: 2022Q1

REPORT INFORMATION
  Report Type: Spontaneous
  Country: RO (occurrence: RO)
  Receive Date: 20170117
  Receipt Date: 20220308
  Transmission Date: 20220423
  Serious: Yes (Other)
  Sender: FDA-Public Use
  Company Number: RO-MLMSERVICE-20170104-0561507-1

PATIENT
  Age: 2 Year
  Sex: Male

DRUGS (2)
  1. FLUCONAZOLE [Suspect]
     Active Substance: FLUCONAZOLE
     Indication: Chronic granulomatous disease
     Dosage: THERAPEUTIC DOSES
     Route: 065
  2. ACETAMINOPHEN [Suspect]
     Active Substance: ACETAMINOPHEN
     Indication: Chronic granulomatous disease
     Dosage: THERAPEUTIC DOSES
     Route: 065

REACTIONS (1)
  - Acute hepatic failure [Unknown]
